FAERS Safety Report 5914859-X (Version None)
Quarter: 2008Q4

REPORT INFORMATION
  Report Type: 
  Country: None (occurrence: None)
  Receive Date: 20081010
  Receipt Date: 20081003
  Transmission Date: 20090506
  Serious: Yes (Other)
  Sender: FDA-Public Use
  Company Number: PHHY2008BR23611

PATIENT
  Age: 65 Year
  Sex: Female

DRUGS (1)
  1. DIOVAN HCT [Suspect]
     Dosage: 80 MG VALSARTAN/12.5 MG HYDROCHLOROTHIAZIDE

REACTIONS (1)
  - CEREBROVASCULAR ACCIDENT [None]
